FAERS Safety Report 5362117-7 (Version None)
Quarter: 2007Q2

REPORT INFORMATION
  Report Type: 
  Country: None (occurrence: None)
  Receive Date: 20070618
  Receipt Date: 20070618
  Transmission Date: 20071010
  Serious: No
  Sender: FDA-Public Use
  Company Number: None

PATIENT
  Age: 78 Year
  Sex: Female

DRUGS (1)
  1. TPN [Suspect]
     Dosage: INJECTABLE

REACTIONS (8)
  - ABDOMINAL DISTENSION [None]
  - DRUG DISPENSING ERROR [None]
  - ILL-DEFINED DISORDER [None]
  - MASS [None]
  - MEDICATION ERROR [None]
  - ORAL INTAKE REDUCED [None]
  - PULMONARY CONGESTION [None]
  - SWELLING FACE [None]
